FAERS Safety Report 9266884 (Version 8)
Quarter: 2013Q3

REPORT INFORMATION
  Report Type: Report from Study
  Country: CA (occurrence: CA)
  Receive Date: 20130502
  Receipt Date: 20130830
  Transmission Date: 20140515
  Serious: Yes (Death, Hospitalization, Other)
  Sender: FDA-Public Use
  Company Number: CA-ROCHE-1146134

PATIENT
  Age: 54 Year
  Sex: Male

DRUGS (5)
  1. ZELBORAF [Suspect]
     Indication: METASTATIC MALIGNANT MELANOMA
     Route: 048
     Dates: start: 20121005, end: 201307
  2. ZELBORAF [Suspect]
     Route: 048
     Dates: start: 20121219, end: 20130622
  3. ZELBORAF [Suspect]
     Route: 048
     Dates: start: 20130629
  4. TYLENOL [Concomitant]
     Indication: HEADACHE
     Route: 065
  5. VITAMIN C [Concomitant]

REACTIONS (8)
  - Disease progression [Fatal]
  - Metastasis [Unknown]
  - Colitis ulcerative [Recovered/Resolved]
  - Rash pruritic [Not Recovered/Not Resolved]
  - Swelling face [Not Recovered/Not Resolved]
  - Dry skin [Not Recovered/Not Resolved]
  - Fatigue [Not Recovered/Not Resolved]
  - Drug ineffective [Unknown]
